FAERS Safety Report 10285212 (Version 2)
Quarter: 2014Q3

REPORT INFORMATION
  Report Type: Report from Study
  Country: US (occurrence: US)
  Receive Date: 20140708
  Receipt Date: 20140708
  Transmission Date: 20150326
  Serious: Yes (Other)
  Sender: FDA-Public Use
  Company Number: US-SA-2014SA076581

PATIENT
  Age: 54 Year
  Sex: Female

DRUGS (1)
  1. AUBAGIO [Suspect]
     Active Substance: TERIFLUNOMIDE
     Indication: MULTIPLE SCLEROSIS
     Route: 048
     Dates: start: 20140530, end: 20140623

REACTIONS (5)
  - Influenza like illness [Not Recovered/Not Resolved]
  - Depression [Unknown]
  - Nausea [Recovering/Resolving]
  - Suicidal ideation [Unknown]
  - Fatigue [Not Recovered/Not Resolved]
